FAERS Safety Report 6254282-4 (Version None)
Quarter: 2009Q3

REPORT INFORMATION
  Report Type: 
  Country: None (occurrence: None)
  Receive Date: 20090701
  Receipt Date: 20090701
  Transmission Date: 20100115
  Serious: No
  Sender: FDA-Public Use
  Company Number: None

PATIENT
  Age: 56 Year
  Sex: Female
  Weight: 72.1219 kg

DRUGS (1)
  1. ENBREL [Suspect]
     Indication: RHEUMATOID ARTHRITIS
     Dosage: 50MG WEEKLY
     Dates: start: 20050101, end: 20081021

REACTIONS (7)
  - BRONCHITIS [None]
  - DRUG INEFFECTIVE [None]
  - ECZEMA [None]
  - GASTROENTERITIS NOROVIRUS [None]
  - INFLUENZA [None]
  - PSORIASIS [None]
  - TINEA PEDIS [None]
